FAERS Safety Report 7904786-0 (Version None)
Quarter: 2011Q4

REPORT INFORMATION
  Report Type: 
  Country: None (occurrence: None)
  Receive Date: 20111109
  Receipt Date: 20111027
  Transmission Date: 20120403
  Serious: Yes (Other)
  Sender: FDA-Public Use
  Company Number: PHHY2011BR79843

PATIENT
  Age: 56 Year
  Sex: Female

DRUGS (1)
  1. FORMOTEROL FUMARATE [Suspect]
     Indication: ASTHMA
     Dosage: 12/400 MCG,1 INHALATION TWICE A DAY

REACTIONS (4)
  - BRONCHITIS [None]
  - EMPHYSEMA [None]
  - DYSPNOEA [None]
  - DEVICE MALFUNCTION [None]
